FAERS Safety Report 24928517 (Version 1)
Quarter: 2025Q1

REPORT INFORMATION
  Report Type: Report from Study
  Country: US (occurrence: US)
  Receive Date: 20250205
  Receipt Date: 20250205
  Transmission Date: 20250408
  Serious: Yes (Hospitalization)
  Sender: ABBVIE
  Company Number: US-ABBVIE-6113473

PATIENT
  Age: 61 Year
  Sex: Male

DRUGS (1)
  1. RINVOQ [Suspect]
     Active Substance: UPADACITINIB
     Indication: Rheumatoid arthritis
     Route: 048
     Dates: start: 20240722

REACTIONS (3)
  - Diverticulitis [Recovered/Resolved]
  - Herpes zoster [Recovered/Resolved]
  - Breakthrough pain [Not Recovered/Not Resolved]

NARRATIVE: CASE EVENT DATE: 20241201
